FAERS Safety Report 6164528-9 (Version None)
Quarter: 2009Q2

REPORT INFORMATION
  Report Type: 
  Country: None (occurrence: None)
  Receive Date: 20090421
  Receipt Date: 20090410
  Transmission Date: 20091009
  Serious: Yes (Other)
  Sender: FDA-Public Use
  Company Number: GXKR2009NL04623

PATIENT
  Age: 64 Year
  Sex: Female

DRUGS (9)
  1. PRAVASTATIN [Suspect]
     Dosage: 1 DF, QD, ORAL
     Route: 048
  2. MAXIM EYES CAPSULES () CAPSULE [Suspect]
     Dosage: ORAL
     Route: 048
     Dates: start: 20080623
  3. ACTONEL [Suspect]
     Dosage: 35 MG, QW, ORAL
     Route: 048
     Dates: end: 20060601
  4. CARBASALATE CALCIUM (CARBASALATE CALCIUM) 100UG [Suspect]
     Dosage: 100 MG, QD, ORAL
     Route: 048
  5. ATACAND [Suspect]
     Dosage: 8 MG, QD, ORAL
     Route: 048
  6. TEMAZEPAM (TEMAZEPAM) CAPSULE, 10MG [Suspect]
     Dosage: 10 MG, QD, ORAL
     Route: 048
  7. NASONEX [Suspect]
     Dosage: 2 DF, QD, INHALATION ; 50 UG, QD, INHALATION
     Route: 055
     Dates: start: 20090112
  8. NASONEX [Suspect]
     Dosage: 2 DF, QD, INHALATION ; 50 UG, QD, INHALATION
     Route: 055
     Dates: start: 20090130
  9. VITAMIN B12 [Suspect]
     Dosage: ORAL
     Route: 048

REACTIONS (2)
  - LACRIMATION INCREASED [None]
  - VISUAL ACUITY REDUCED [None]
